FAERS Safety Report 20454103 (Version 1)
Quarter: 2022Q1

REPORT INFORMATION
  Report Type: Spontaneous
  Country: MX (occurrence: MX)
  Receive Date: 20220210
  Receipt Date: 20220210
  Transmission Date: 20220423
  Serious: Yes (Other)
  Sender: FDA-Public Use
  Company Number: MX-NOVARTISPH-NVSC2022MX028244

PATIENT
  Age: 25 Year
  Sex: Male
  Weight: 73 kg

DRUGS (5)
  1. RITALIN LA [Suspect]
     Active Substance: METHYLPHENIDATE HYDROCHLORIDE
     Indication: Attention deficit hyperactivity disorder
     Dosage: 1 DOSAGE FORM, QD
     Route: 048
     Dates: start: 20211229, end: 20220201
  2. RITALIN LA [Suspect]
     Active Substance: METHYLPHENIDATE HYDROCHLORIDE
     Indication: Psychomotor hyperactivity
  3. VENLAFAXINE [Concomitant]
     Active Substance: VENLAFAXINE HYDROCHLORIDE
     Indication: Attention deficit hyperactivity disorder
     Dosage: UNK UNK, QD
     Route: 048
     Dates: start: 20211101
  4. VENLAFAXINE [Concomitant]
     Active Substance: VENLAFAXINE HYDROCHLORIDE
     Indication: Psychomotor hyperactivity
  5. VITAMIN D [Concomitant]
     Active Substance: VITAMIN D NOS
     Indication: Vitamin D
     Dosage: 1 DOSAGE FORM, QD
     Route: 048
     Dates: start: 20211111

REACTIONS (8)
  - Suicidal ideation [Unknown]
  - Frustration tolerance decreased [Unknown]
  - Decreased appetite [Not Recovered/Not Resolved]
  - Laziness [Not Recovered/Not Resolved]
  - Feeling of despair [Unknown]
  - Disturbance in attention [Unknown]
  - Memory impairment [Recovering/Resolving]
  - Product availability issue [Unknown]

NARRATIVE: CASE EVENT DATE: 20220202
